FAERS Safety Report 9582316 (Version 1)
Quarter: 2013Q4

REPORT INFORMATION
  Report Type: Spontaneous
  Country: US (occurrence: US)
  Receive Date: 20131002
  Receipt Date: 20131002
  Transmission Date: 20140711
  Serious: No
  Sender: FDA-Public Use
  Company Number: US-AMGEN-USASP2013039772

PATIENT
  Age: 77 Year
  Sex: Female
  Weight: 47.17 kg

DRUGS (6)
  1. ENBREL [Suspect]
     Indication: PRODUCT USED FOR UNKNOWN INDICATION
     Dosage: 50 MG, QWK
     Route: 058
  2. GLUCOSAMINE + CHONDROITIN          /01430901/ [Concomitant]
     Dosage: 500-400, UNK
  3. CALCIUM [Concomitant]
     Dosage: 500, UNK
  4. VITAMIN C                          /00008001/ [Concomitant]
     Dosage: 500 MG, UNK
  5. HYDROCHLOROTH [Concomitant]
     Dosage: 12.5 MG, UNK
  6. PRAVASTATIN [Concomitant]
     Dosage: 10 MG, UNK

REACTIONS (1)
  - Nasopharyngitis [Unknown]
